FAERS Safety Report 5499367-5 (Version None)
Quarter: 2007Q4

REPORT INFORMATION
  Report Type: 
  Country: None (occurrence: None)
  Receive Date: 20071026
  Receipt Date: 20071024
  Transmission Date: 20080405
  Serious: Yes (Disabling, Other)
  Sender: FDA-Public Use
  Company Number: A0670640A

PATIENT
  Age: 24 Year
  Sex: Male

DRUGS (2)
  1. LAMICTAL [Suspect]
     Indication: MIGRAINE
     Dosage: 100MG AT NIGHT
     Route: 048
     Dates: start: 20050901, end: 20051205
  2. PERCOCET [Concomitant]

REACTIONS (1)
  - TREMOR [None]
